FAERS Safety Report 9499085 (Version 3)
Quarter: 2014Q2

REPORT INFORMATION
  Report Type: Spontaneous
  Country: CA (occurrence: CA)
  Receive Date: 20130904
  Receipt Date: 20140513
  Transmission Date: 20141212
  Serious: Yes (Hospitalization, Other)
  Sender: FDA-Public Use
  Company Number: CA-RB-057889-13

PATIENT
  Age: 0 Year
  Sex: Male

DRUGS (10)
  1. SUBOXONE TABLET [Suspect]
     Dosage: 4 - 10 MGS PER DAY
     Route: 064
     Dates: start: 201207, end: 20120924
  2. SUBOXONE TABLET [Suspect]
     Indication: DRUG DEPENDENCE
     Dosage: MOTHER RESATARTED SUBOXONE 4MG -10 MG
     Route: 064
     Dates: start: 20121010, end: 20130418
  3. SUBOXONE TABLET [Suspect]
     Dosage: FURTHER DOSING DETAILS UNKNOWN
     Route: 063
     Dates: start: 2013
  4. SUBUTEX [Suspect]
     Indication: DRUG DEPENDENCE
     Route: 064
     Dates: start: 20120925, end: 20121009
  5. ZOFRAN [Suspect]
     Indication: VOMITING
     Dosage: DOSING DETAILS UNKNOWN
     Route: 064
  6. ZOFRAN [Suspect]
     Indication: VOMITING
     Dosage: DOSING DETAILS UNKNOWN
     Route: 064
  7. PROZAC [Concomitant]
     Dosage: FURTHER MATERNAL DOSING DETAILS UNKNOWN
     Route: 064
     Dates: start: 201206, end: 20130418
  8. PROZAC [Concomitant]
     Indication: DEPRESSION
     Dosage: FURTHER DOSING DETAILS UNKNOWN
     Route: 063
     Dates: start: 201304, end: 2013
  9. NICOTINE [Concomitant]
     Indication: PRODUCT USED FOR UNKNOWN INDICATION
     Dosage: MOTHER SMOKEING 5 CIGARETTES DAILY
     Route: 064
     Dates: start: 201207, end: 20130418
  10. NICOTINE [Concomitant]
     Dosage: MOTHER SMOKES 5 CIGARETTES DAILY
     Route: 063
     Dates: start: 201304, end: 2013

REACTIONS (5)
  - Foetal exposure during pregnancy [Recovered/Resolved]
  - Jaundice neonatal [Recovered/Resolved]
  - Neonatal respiratory depression [Recovered/Resolved]
  - Exposure during breast feeding [Recovered/Resolved]
  - Poor weight gain neonatal [Unknown]
